FAERS Safety Report 7928602-6 (Version None)
Quarter: 2011Q4

REPORT INFORMATION
  Report Type: 
  Country: None (occurrence: None)
  Receive Date: 20111118
  Receipt Date: 20111114
  Transmission Date: 20120403
  Serious: Yes (Other)
  Sender: FDA-Public Use
  Company Number: US-BAYER-2011-103941

PATIENT
  Sex: Male
  Weight: 83.9 kg

DRUGS (3)
  1. PERINDOPRIL ERBUMINE [Concomitant]
  2. ASPIRIN [Concomitant]
     Dosage: BOTTLE COUNT 36S
     Route: 048
  3. ASPIRIN [Suspect]
     Dosage: 2 TO 3 TABLETS AS NEEDED, BOTTLE COUNT 300S
     Route: 048
     Dates: start: 20110101, end: 20110101

REACTIONS (5)
  - DIARRHOEA HAEMORRHAGIC [None]
  - GOUT [None]
  - HAEMATOCHEZIA [None]
  - GASTRIC HAEMORRHAGE [None]
  - ABDOMINAL DISCOMFORT [None]
